FAERS Safety Report 6253256-7 (Version None)
Quarter: 2009Q3

REPORT INFORMATION
  Report Type: 
  Country: None (occurrence: None)
  Receive Date: 20090701
  Receipt Date: 20090623
  Transmission Date: 20100115
  Serious: Yes (Death)
  Sender: FDA-Public Use
  Company Number: US-AVENTIS-200915503US

PATIENT
  Age: 70 Year
  Sex: Male

DRUGS (1)
  1. LOVENOX [Suspect]
     Dates: start: 20081201

REACTIONS (4)
  - DYSPEPSIA [None]
  - FATIGUE [None]
  - METASTASIS [None]
  - PANCREATIC CARCINOMA [None]
